FAERS Safety Report 6651731-4 (Version None)
Quarter: 2010Q1

REPORT INFORMATION
  Report Type: 
  Country: None (occurrence: None)
  Receive Date: 20100325
  Receipt Date: 20100318
  Transmission Date: 20100710
  Serious: Yes (Hospitalization)
  Sender: FDA-Public Use
  Company Number: JP-MERCK-0908USA00871

PATIENT
  Age: 79 Year
  Sex: Male

DRUGS (5)
  1. PEPCID RPD [Suspect]
     Route: 048
     Dates: start: 20050528, end: 20050708
  2. ASPIRIN [Suspect]
     Route: 048
     Dates: start: 20050528, end: 20050708
  3. PANALDINE [Suspect]
     Route: 048
     Dates: start: 20050528, end: 20050708
  4. PLETAL [Suspect]
     Route: 048
     Dates: start: 20050709, end: 20050722
  5. WARFARIN [Suspect]
     Route: 048

REACTIONS (1)
  - GRANULOCYTE COUNT DECREASED [None]
